FAERS Safety Report 10175527 (Version 2)
Quarter: 2014Q3

REPORT INFORMATION
  Report Type: Spontaneous
  Country: TW (occurrence: TW)
  Receive Date: 20140516
  Receipt Date: 20140702
  Transmission Date: 20150326
  Serious: Yes (Hospitalization)
  Sender: FDA-Public Use
  Company Number: PHHY2014TW055598

PATIENT
  Age: 58 Year
  Sex: Male

DRUGS (4)
  1. VALPROIC ACID. [Suspect]
     Active Substance: VALPROIC ACID
     Indication: SCHIZOPHRENIA
     Dosage: 500 MG, UNK
  2. QUETIAPINE [Interacting]
     Active Substance: QUETIAPINE
     Dosage: 500 MG, PER DAY
  3. QUETIAPINE [Interacting]
     Active Substance: QUETIAPINE
     Dosage: 100 MG, PER DAY
  4. QUETIAPINE [Interacting]
     Active Substance: QUETIAPINE
     Indication: SCHIZOPHRENIA
     Dosage: 500 MG, UNK

REACTIONS (7)
  - Abdominal pain [Recovering/Resolving]
  - Pyrexia [Recovering/Resolving]
  - Pancreatitis acute [Recovering/Resolving]
  - Drug interaction [Unknown]
  - Gallbladder polyp [Recovering/Resolving]
  - Vomiting [Recovering/Resolving]
  - Chills [Recovering/Resolving]
